FAERS Safety Report 24258843 (Version 1)
Quarter: 2024Q3

REPORT INFORMATION
  Report Type: Spontaneous
  Country: US (occurrence: US)
  Receive Date: 20240828
  Receipt Date: 20240828
  Transmission Date: 20241017
  Serious: Yes (Other)
  Sender: NOVARTIS
  Company Number: US-002147023-NVSC2024US173014

PATIENT
  Sex: Male

DRUGS (1)
  1. PLUVICTO [Suspect]
     Active Substance: LUTETIUM LU-177 VIPIVOTIDE TETRAXETAN
     Indication: Prostate cancer metastatic
     Dosage: 200 IU (7.4GBQ (200MIC)), EVERY 6 WEEKS (FORMULATION: VIAL)
     Route: 042
     Dates: start: 20240824

REACTIONS (1)
  - Sialoadenitis [Not Recovered/Not Resolved]
